FAERS Safety Report 6229260-1 (Version None)
Quarter: 2009Q2

REPORT INFORMATION
  Report Type: 
  Country: None (occurrence: None)
  Receive Date: 20090615
  Receipt Date: 20090605
  Transmission Date: 20091009
  Serious: Yes (Other)
  Sender: FDA-Public Use
  Company Number: US-BAYER-200918838NA

PATIENT
  Age: 53 Year
  Sex: Male

DRUGS (8)
  1. AVELOX [Suspect]
     Indication: PNEUMONIA
     Dates: start: 20080604
  2. AVELOX [Suspect]
     Dates: start: 20070904
  3. AVELOX [Suspect]
     Dates: start: 20070604
  4. AVELOX [Suspect]
     Dates: start: 20060515
  5. AVELOX [Suspect]
     Dates: start: 20060731
  6. SPIRIVA [Concomitant]
  7. ADVAIR HFA [Concomitant]
     Dosage: 250/50
  8. SINGULAIR [Concomitant]

REACTIONS (4)
  - ANAPHYLACTIC REACTION [None]
  - DYSPNOEA [None]
  - MALAISE [None]
  - RASH [None]
